FAERS Safety Report 20401368 (Version 2)
Quarter: 2022Q1

REPORT INFORMATION
  Report Type: Spontaneous
  Country: US (occurrence: US)
  Receive Date: 20220131
  Receipt Date: 20220201
  Transmission Date: 20220423
  Serious: No
  Sender: FDA-Public Use
  Company Number: US-ABBVIE-21K-163-4161119-00

PATIENT
  Age: 41 Year
  Sex: Female
  Weight: 81.720 kg

DRUGS (9)
  1. HUMIRA [Suspect]
     Active Substance: ADALIMUMAB
     Indication: Colitis ulcerative
     Route: 058
     Dates: start: 20211112, end: 20211112
  2. OMEPRAZOLE [Concomitant]
     Active Substance: OMEPRAZOLE
     Indication: Colitis ulcerative
     Route: 065
  3. FAMOTIDINE [Concomitant]
     Active Substance: FAMOTIDINE
     Indication: Colitis ulcerative
     Route: 058
  4. ONDANSETRON [Concomitant]
     Active Substance: ONDANSETRON
     Indication: Colitis ulcerative
     Route: 058
  5. FERROUS SULFATE [Concomitant]
     Active Substance: FERROUS SULFATE
     Indication: Anaemia
     Route: 065
  6. PREDNISONE [Concomitant]
     Active Substance: PREDNISONE
     Indication: Product used for unknown indication
     Route: 065
  7. AZATHIOPRINE [Concomitant]
     Active Substance: AZATHIOPRINE
     Indication: Colitis ulcerative
     Route: 065
  8. COVID-19 VACCINE [Concomitant]
     Indication: COVID-19 immunisation
     Dosage: 1ST DOSE
     Route: 030
     Dates: start: 2021, end: 2021
  9. COVID-19 VACCINE [Concomitant]
     Dosage: 2ND DOSE
     Route: 030
     Dates: start: 20210429, end: 20210429

REACTIONS (1)
  - Intentional product misuse [Recovered/Resolved]

NARRATIVE: CASE EVENT DATE: 20211112
